FAERS Safety Report 13996727 (Version 2)
Quarter: 2017Q4

REPORT INFORMATION
  Report Type: Spontaneous
  Country: US (occurrence: US)
  Receive Date: 20170921
  Receipt Date: 20171207
  Transmission Date: 20180321
  Serious: No
  Sender: FDA-Public Use
  Company Number: US-ALLERGAN-1747864US

PATIENT
  Sex: Male

DRUGS (2)
  1. IMODIUM [Concomitant]
     Active Substance: LOPERAMIDE HYDROCHLORIDE
     Indication: DIARRHOEA
     Dosage: 12 HOURS AFTER VIBERZI
     Route: 065
  2. VIBERZI [Suspect]
     Active Substance: ELUXADOLINE
     Indication: IRRITABLE BOWEL SYNDROME
     Dosage: 1 DF, QD
     Route: 065
     Dates: start: 201708

REACTIONS (1)
  - Feeling abnormal [Recovered/Resolved]
